FAERS Safety Report 6772359-1 (Version None)
Quarter: 2010Q2

REPORT INFORMATION
  Report Type: 
  Country: None (occurrence: None)
  Receive Date: 20100616
  Receipt Date: 20091030
  Transmission Date: 20101027
  Serious: No
  Sender: FDA-Public Use
  Company Number: US-ASTRAZENECA-2009SE23729

PATIENT
  Sex: Female
  Weight: 44 kg

DRUGS (10)
  1. PULMICORT RESPULES [Suspect]
     Indication: CHRONIC OBSTRUCTIVE PULMONARY DISEASE
     Route: 055
     Dates: start: 20090101
  2. XOPENEX [Concomitant]
  3. ALLEGRA [Concomitant]
  4. SINGULAIR [Concomitant]
  5. NASONEX [Concomitant]
  6. PREVACID [Concomitant]
  7. COSOPT [Concomitant]
  8. CARDIZEM [Concomitant]
  9. ATROVENT [Concomitant]
  10. FUROSEMIDE [Concomitant]

REACTIONS (3)
  - ALOPECIA [None]
  - BONE PAIN [None]
  - MYALGIA [None]
